FAERS Safety Report 23083536 (Version 1)
Quarter: 2023Q4

REPORT INFORMATION
  Report Type: Spontaneous
  Country: US (occurrence: US)
  Receive Date: 20231019
  Receipt Date: 20231019
  Transmission Date: 20240110
  Serious: Yes (Other)
  Sender: FDA-Public Use
  Company Number: US-PFIZER INC-PV202300166927

PATIENT
  Age: 79 Year
  Sex: Female

DRUGS (2)
  1. MILRINONE [Suspect]
     Active Substance: MILRINONE
     Indication: Cardiac disorder
     Dosage: UNK
  2. VASOPRESSIN [Concomitant]
     Active Substance: VASOPRESSIN
     Indication: Portal hypertension
     Dosage: UNK

REACTIONS (2)
  - Hypotension [Unknown]
  - Vasodilatation [Unknown]
